FAERS Safety Report 15505722 (Version 1)
Quarter: 2018Q4

REPORT INFORMATION
  Report Type: Spontaneous
  Country: US (occurrence: US)
  Receive Date: 20181016
  Receipt Date: 20181016
  Transmission Date: 20190205
  Serious: Yes (Other)
  Sender: FDA-Public Use
  Company Number: US-ACCORD-073527

PATIENT
  Age: 80 Year
  Sex: Male

DRUGS (1)
  1. CYANOCOBALAMIN. [Suspect]
     Active Substance: CYANOCOBALAMIN
     Dosage: SELF-INJECTION

REACTIONS (5)
  - Mitral valve incompetence [Recovered/Resolved]
  - Cardiac failure congestive [Recovered/Resolved]
  - Endocarditis [Recovered/Resolved]
  - Abscess [Recovered/Resolved]
  - Self-medication [Unknown]
